FAERS Safety Report 4409779-6 (Version None)
Quarter: 2004Q3

REPORT INFORMATION
  Report Type: 
  Country: None (occurrence: None)
  Receive Date: 20040726
  Receipt Date: 20040713
  Transmission Date: 20050211
  Serious: Yes (Hospitalization)
  Sender: FDA-Public Use
  Company Number: TOR 2004-0022

PATIENT
  Age: 64 Year
  Sex: Female

DRUGS (5)
  1. FARESTON [Suspect]
     Indication: BREAST CANCER
     Dosage: 60 MG ORAL
     Route: 048
     Dates: start: 19990815
  2. ADRIAMYCIN PFS [Concomitant]
  3. CYCLOPHOSPLAMIDE [Concomitant]
  4. METHOTREXATE [Concomitant]
  5. FLUOROURACIL [Concomitant]

REACTIONS (2)
  - ENDOMETRIAL HYPERPLASIA [None]
  - UTERINE POLYP [None]
